FAERS Safety Report 7524707-2 (Version None)
Quarter: 2011Q2

REPORT INFORMATION
  Report Type: 
  Country: None (occurrence: None)
  Receive Date: 20110525
  Receipt Date: 20110510
  Transmission Date: 20111010
  Serious: Yes (Congenital Anomaly)
  Sender: FDA-Public Use
  Company Number: 2011MA005741

PATIENT
  Age: 7 Year
  Sex: Male
  Weight: 16.5 kg

DRUGS (2)
  1. PHENOBARBITAL TAB [Concomitant]
  2. CARBAMAZEPINE [Suspect]
     Indication: EPILEPSY
     Dosage: 200 MG; BID

REACTIONS (11)
  - HYPOSPADIAS [None]
  - GROWTH RETARDATION [None]
  - HYPOTELORISM OF ORBIT [None]
  - LOW SET EARS [None]
  - BODY HEIGHT BELOW NORMAL [None]
  - CONGENITAL NOSE MALFORMATION [None]
  - PROMINENT EPICANTHAL FOLDS [None]
  - INSULIN-LIKE GROWTH FACTOR DECREASED [None]
  - MATERNAL DRUGS AFFECTING FOETUS [None]
  - PHALANGEAL HYPOPLASIA [None]
  - NASAL DISORDER [None]
